FAERS Safety Report 7412941-1 (Version None)
Quarter: 2011Q2

REPORT INFORMATION
  Report Type: 
  Country: None (occurrence: None)
  Receive Date: 20110408
  Receipt Date: 20110408
  Transmission Date: 20111010
  Serious: Yes (Other)
  Sender: FDA-Public Use
  Company Number: None

PATIENT
  Sex: Male
  Weight: 35.3806 kg

DRUGS (1)
  1. VYVANSE [Suspect]
     Indication: ATTENTION DEFICIT/HYPERACTIVITY DISORDER
     Dosage: 20 MG ONCE/DAY PO
     Route: 048
     Dates: start: 20110405, end: 20110407

REACTIONS (6)
  - DECREASED APPETITE [None]
  - TIC [None]
  - DEPRESSION [None]
  - ABDOMINAL PAIN UPPER [None]
  - NAUSEA [None]
  - CHEILITIS [None]
